FAERS Safety Report 7552464-2 (Version None)
Quarter: 2011Q2

REPORT INFORMATION
  Report Type: 
  Country: None (occurrence: None)
  Receive Date: 20110616
  Receipt Date: 20110608
  Transmission Date: 20111010
  Serious: Yes (Hospitalization)
  Sender: FDA-Public Use
  Company Number: JP-CEPHALON-2011002981

PATIENT
  Sex: Female
  Weight: 58 kg

DRUGS (12)
  1. LEVOFLOXACIN [Concomitant]
  2. OMEPRAZOLE [Concomitant]
  3. IBUPROFEN [Concomitant]
     Dates: start: 20110111, end: 20110111
  4. BENDAMUSTINE HCL [Suspect]
     Route: 042
     Dates: start: 20110112, end: 20110112
  5. RITUXIMAB [Concomitant]
     Dates: start: 20101220, end: 20110111
  6. ITRACONAZOLE [Concomitant]
  7. SULFAMETHOXAZOLE AND TRIMETHOPRIM [Concomitant]
  8. CHLORPHENIRAMINE MALEATE [Concomitant]
     Dates: start: 20110111, end: 20110111
  9. GRANISETRON HCL [Concomitant]
     Dates: start: 20101221, end: 20110112
  10. BENDAMUSTINE HCL [Suspect]
     Indication: B-CELL LYMPHOMA
     Route: 042
     Dates: start: 20101221, end: 20101222
  11. TEPRENONE [Concomitant]
  12. MAGNESIUM OXIDE [Concomitant]

REACTIONS (3)
  - BACK PAIN [None]
  - ASTEATOSIS [None]
  - PANCYTOPENIA [None]
